FAERS Safety Report 7347040-0 (Version None)
Quarter: 2011Q1

REPORT INFORMATION
  Report Type: 
  Country: None (occurrence: None)
  Receive Date: 20110311
  Receipt Date: 20110309
  Transmission Date: 20110831
  Serious: Yes (Death)
  Sender: FDA-Public Use
  Company Number: PHHY2011CA12581

PATIENT
  Sex: Male

DRUGS (3)
  1. CLOZARIL [Suspect]
     Dosage: UNK
     Dates: start: 20100531
  2. ZYPREXA [Concomitant]
  3. ABILIFY [Concomitant]

REACTIONS (2)
  - ASPIRATION [None]
  - ASPHYXIA [None]
